FAERS Safety Report 5382973-6 (Version None)
Quarter: 2007Q2

REPORT INFORMATION
  Report Type: 
  Country: None (occurrence: None)
  Receive Date: 20070629
  Receipt Date: 20070402
  Transmission Date: 20071010
  Serious: Yes (Hospitalization)
  Sender: FDA-Public Use
  Company Number: US200704001180

PATIENT
  Weight: 2.2 kg

DRUGS (7)
  1. HUMULIN N [Suspect]
     Dosage: 8 U, 2/D, TRANSPLACENTAL
     Route: 064
     Dates: start: 20060606, end: 20060806
  2. HUMALOG [Suspect]
     Dosage: 22 U, TRANSPLACENTAL; 22 U
     Route: 064
     Dates: end: 20070104
  3. HUMALOG [Suspect]
     Dosage: 22 U, TRANSPLACENTAL; 22 U
     Route: 064
     Dates: start: 20060829
  4. PRENATAL VITAMINS /01549301/ (ASCORBIC ACID, BIOTIN, MINERALS NOS, NIC [Concomitant]
  5. METHYLDOPA [Concomitant]
  6. LANTUS [Concomitant]
  7. LABETALOL HCL [Concomitant]

REACTIONS (6)
  - BLOOD GLUCOSE DECREASED [None]
  - BODY TEMPERATURE DECREASED [None]
  - DRUG EXPOSURE DURING PREGNANCY [None]
  - JAUNDICE NEONATAL [None]
  - PREMATURE BABY [None]
  - SMALL FOR DATES BABY [None]
